FAERS Safety Report 4371655-5 (Version None)
Quarter: 2004Q2

REPORT INFORMATION
  Report Type: 
  Country: None (occurrence: None)
  Receive Date: 20040602
  Receipt Date: 20040521
  Transmission Date: 20050107
  Serious: Yes (Other)
  Sender: FDA-Public Use
  Company Number: 2004034517

PATIENT
  Age: 74 Year
  Sex: Male
  Weight: 115.2136 kg

DRUGS (22)
  1. TIKOSYN [Suspect]
     Indication: ATRIAL FIBRILLATION
     Dosage: 1000 MCG (500 MCG, 2 IN 1 D), ORAL
     Route: 048
     Dates: start: 20030101
  2. CALAMINE/CAMPHOR/DIPHENYDRAMINE (CALAMINE, CAMPHOR, DIPHENHYDRAMINE) [Suspect]
     Indication: ILL-DEFINED DISORDER
     Dates: start: 20040520
  3. QUINAPRIL HCL [Concomitant]
  4. FEXOFENADINE HYDROCHLORIDE (FEXOFENADINE HYDROCHLORIED) [Concomitant]
  5. IPRATROPIUM BROMIDE [Concomitant]
  6. DILTIAZEM HYDROCHLORIDE [Concomitant]
  7. CEFUROXIME AXETIL (CEFUROXIME AXETIL) [Concomitant]
  8. COMBIVENT [Concomitant]
  9. OXAPROZIN [Concomitant]
  10. MORACIZINE HYDROCHLORIDE (MORACIZINE HYDROCHLORIDE) [Concomitant]
  11. FLUTICASONE PROPIONATE [Concomitant]
  12. FLUTICASONE PROPIONATE [Concomitant]
  13. POTASSIUM CHLORIDE [Concomitant]
  14. DIGOXIN [Concomitant]
  15. NICOTINIC ACID [Concomitant]
  16. PRAVASTATIN SODIUM [Concomitant]
  17. MONTELUKAST (MONTELUKAST) [Concomitant]
  18. LEVOTHYROXINE SODIUM [Concomitant]
  19. AZITHROMYCIN [Concomitant]
  20. AZITHROMYCIN [Concomitant]
  21. SALBUTAMOL (SALBUTAMOL) [Concomitant]
  22. IPRATROPIUM BROMIDE (IPATROPIUM BROMIDE) [Concomitant]

REACTIONS (2)
  - DRUG INTERACTION [None]
  - DYSPNOEA [None]
